FAERS Safety Report 12249997 (Version 1)
Quarter: 2016Q2

REPORT INFORMATION
  Report Type: Report from Study
  Country: US (occurrence: US)
  Receive Date: 20160408
  Receipt Date: 20160408
  Transmission Date: 20160815
  Serious: Yes (Other)
  Sender: FDA-Public Use
  Company Number: ADR-2015-01480

PATIENT
  Age: 59 Year
  Sex: Male

DRUGS (9)
  1. BUPIVACAINE. [Suspect]
     Active Substance: BUPIVACAINE
     Dosage: 2.007 MG/DAY
     Route: 037
  2. ZANAFLEX [Concomitant]
     Active Substance: TIZANIDINE HYDROCHLORIDE
  3. DILAUDID [Concomitant]
     Active Substance: HYDROMORPHONE HYDROCHLORIDE
  4. CLONIDINE. [Suspect]
     Active Substance: CLONIDINE
     Dosage: 8.028 MCG/DAY
     Route: 037
  5. BACLOFEN. [Suspect]
     Active Substance: BACLOFEN
     Dosage: 80.28 MCG/DAY
     Route: 037
  6. MIRALAX [Concomitant]
     Active Substance: POLYETHYLENE GLYCOL 3350
  7. FENTANYL. [Suspect]
     Active Substance: FENTANYL
     Dosage: 30.10 MCG/DAY
     Route: 037
  8. NEURONTIN [Concomitant]
     Active Substance: GABAPENTIN
  9. REMERON [Concomitant]
     Active Substance: MIRTAZAPINE

REACTIONS (1)
  - Drug withdrawal syndrome [Recovered/Resolved]
